FAERS Safety Report 5001445-1 (Version None)
Quarter: 2006Q2

REPORT INFORMATION
  Report Type: 
  Country: None (occurrence: None)
  Receive Date: 20060512
  Receipt Date: 20060303
  Transmission Date: 20061013
  Serious: Yes (Hospitalization)
  Sender: FDA-Public Use
  Company Number: US-MERCK-0603USA00851

PATIENT
  Age: 80 Year
  Sex: Male
  Weight: 75 kg

DRUGS (24)
  1. VIOXX [Suspect]
     Indication: RHEUMATOID ARTHRITIS
     Route: 048
     Dates: start: 20020905, end: 20040921
  2. DIGOXIN [Concomitant]
     Indication: CARDIAC DISORDER
     Route: 065
     Dates: start: 20000523
  3. LIPITOR [Concomitant]
     Indication: BLOOD CHOLESTEROL INCREASED
     Route: 065
     Dates: start: 20000504, end: 20040901
  4. PROPOXYPHENE HYDROCHLORIDE [Concomitant]
     Indication: RHEUMATOID ARTHRITIS
     Route: 065
     Dates: start: 20000608
  5. AMOXICILLIN [Concomitant]
     Route: 065
  6. ALLEGRA [Concomitant]
     Indication: HYPERSENSITIVITY
     Route: 065
  7. ALPRAZOLAM [Concomitant]
     Indication: ANXIETY
     Route: 065
  8. PRILOSEC [Concomitant]
     Indication: GASTRIC DISORDER
     Route: 065
  9. ARICEPT [Concomitant]
     Indication: DEMENTIA ALZHEIMER'S TYPE
     Route: 065
  10. CELEXA [Concomitant]
     Indication: ANXIETY
     Route: 065
  11. CELEXA [Concomitant]
     Indication: DEPRESSION
     Route: 065
  12. CEFUROXIME [Concomitant]
     Route: 065
  13. NASONEX [Concomitant]
     Indication: DYSPNOEA
     Route: 055
  14. BIAXIN XL [Concomitant]
     Route: 065
  15. ADVAIR DISKUS 100/50 [Concomitant]
     Indication: DYSPNOEA
     Route: 065
  16. PROMETHAZINE [Concomitant]
     Indication: DYSPNOEA
     Route: 065
  17. RANITIDINE [Concomitant]
     Indication: GASTRIC DISORDER
     Route: 065
  18. QUININE SULFATE [Concomitant]
     Route: 065
  19. KRISTALOSE [Concomitant]
     Indication: INTESTINAL FUNCTIONAL DISORDER
     Route: 065
  20. CIPROFLOXACIN [Concomitant]
     Route: 065
  21. SONATA [Concomitant]
     Indication: SLEEP DISORDER
     Route: 065
  22. MECLIZINE [Concomitant]
     Indication: HYPERSENSITIVITY
     Route: 065
  23. ZYRTEC [Concomitant]
     Indication: HYPERSENSITIVITY
     Route: 065
  24. FLONASE [Concomitant]
     Indication: DYSPNOEA
     Route: 055

REACTIONS (2)
  - CORONARY ARTERY DISEASE [None]
  - MYOCARDIAL INFARCTION [None]
